FAERS Safety Report 15004640 (Version 1)
Quarter: 2018Q2

REPORT INFORMATION
  Report Type: Spontaneous
  Country: US (occurrence: US)
  Receive Date: 20180521
  Receipt Date: 20180521
  Transmission Date: 20180711
  Serious: Yes (Hospitalization)
  Sender: FDA-Public Use
  Company Number: None

PATIENT
  Age: 73 Year
  Sex: Female
  Weight: 57.2 kg

DRUGS (1)
  1. ASA [Suspect]
     Active Substance: ASPIRIN
     Route: 048

REACTIONS (3)
  - Haemorrhagic anaemia [None]
  - Anastomotic ulcer [None]
  - Upper gastrointestinal haemorrhage [None]

NARRATIVE: CASE EVENT DATE: 20180221
